FAERS Safety Report 14262473 (Version 1)
Quarter: 2017Q4

REPORT INFORMATION
  Report Type: Report from Study
  Country: US (occurrence: US)
  Receive Date: 20171208
  Receipt Date: 20171208
  Transmission Date: 20180321
  Serious: No
  Sender: FDA-Public Use
  Company Number: US-KYOWAKIRIN-2017BKK002179

PATIENT

DRUGS (3)
  1. GRANISETRON [Suspect]
     Active Substance: GRANISETRON
     Indication: PROPHYLAXIS OF NAUSEA AND VOMITING
     Dosage: 1 DF, FOR 6 DAYS
     Route: 062
     Dates: start: 20170716, end: 20170717
  2. GRANISETRON [Suspect]
     Active Substance: GRANISETRON
     Dosage: 1 DF, FOR 6 DAYS
     Route: 062
     Dates: start: 20170723
  3. OXALIPLATIN. [Suspect]
     Active Substance: OXALIPLATIN
     Indication: CHEMOTHERAPY
     Dosage: UNK
     Route: 065
     Dates: start: 20170724, end: 20170724

REACTIONS (6)
  - Rash [Recovered/Resolved]
  - Erythema [Recovered/Resolved]
  - Infusion related reaction [None]
  - White blood cell count decreased [Recovered/Resolved]
  - Tinnitus [Recovered/Resolved]
  - Drug prescribing error [None]

NARRATIVE: CASE EVENT DATE: 20170717
